FAERS Safety Report 7250169-9 (Version None)
Quarter: 2011Q1

REPORT INFORMATION
  Report Type: 
  Country: None (occurrence: None)
  Receive Date: 20110128
  Receipt Date: 20110112
  Transmission Date: 20110831
  Serious: Yes (Death)
  Sender: FDA-Public Use
  Company Number: JP-BAYER-2011-003341

PATIENT
  Sex: Male
  Weight: 67 kg

DRUGS (24)
  1. HERBESSER [Concomitant]
     Dosage: DAILY DOSE 200 MG
     Route: 048
  2. HIRUDOID [Concomitant]
     Dosage: UNK
     Route: 061
     Dates: start: 20101209, end: 20101227
  3. LENDORMIN [Concomitant]
     Dosage: DAILY DOSE .25 MG
     Route: 048
     Dates: start: 20101210
  4. PARIET [Concomitant]
     Indication: PROPHYLAXIS
     Dosage: DAILY DOSE 10 MG
     Route: 048
     Dates: start: 20101214
  5. OXINORM [Concomitant]
     Indication: PAIN
     Dosage: DAILY DOSE 2.5 MG
     Route: 048
     Dates: start: 20101214
  6. NOVAMIN [Concomitant]
     Indication: PAIN
     Dosage: DAILY DOSE 5 MG
     Route: 048
     Dates: start: 20101214
  7. SORAFENIB (RAF KINASE INHIBITOR) [Suspect]
     Indication: HEPATIC NEOPLASM MALIGNANT
     Dosage: 400 MG, QD
     Route: 048
     Dates: start: 20101209, end: 20101227
  8. LOXONIN [Concomitant]
     Dosage: DAILY DOSE 100 MG
     Route: 062
     Dates: start: 20101210
  9. PURSENNID [Concomitant]
     Indication: CONSTIPATION PROPHYLAXIS
     Dosage: DAILY DOSE 12 MG
     Route: 048
     Dates: start: 20101210, end: 20101217
  10. MAGLAX [Concomitant]
     Indication: CONSTIPATION PROPHYLAXIS
     Dosage: DAILY DOSE 990 MG
     Route: 048
     Dates: start: 20101210, end: 20101217
  11. MIYA BM [Concomitant]
     Indication: PROPHYLAXIS
     Dosage: DAILY DOSE 6 G
     Route: 048
     Dates: start: 20101214
  12. GASTER D [Concomitant]
     Dosage: DAILY DOSE 40 MG
     Route: 048
  13. LIVACT [Concomitant]
     Dosage: DAILY DOSE 12.45 G
     Route: 048
  14. MYSLEE [Concomitant]
     Indication: INSOMNIA
     Dosage: DAILY DOSE 5 MG
     Route: 048
     Dates: start: 20101210
  15. GLAKAY [Concomitant]
     Dosage: DAILY DOSE 45 MG
     Route: 048
  16. LOXONIN [Concomitant]
     Dosage: DAILY DOSE 240 MG
     Route: 048
     Dates: start: 20101214
  17. AMINOLEBAN [Concomitant]
     Dosage: DAILY DOSE 500 ML
     Route: 042
     Dates: start: 20101214, end: 20101214
  18. UNCODEABLE ^UNCLASSIFIABLE^ [Concomitant]
     Dosage: DAILY DOSE 20 MG
     Route: 062
     Dates: start: 20101210
  19. URSO 250 [Concomitant]
     Dosage: DAILY DOSE 600 MG
     Route: 048
     Dates: start: 20101210, end: 20101217
  20. VOLTAREN [Concomitant]
     Dosage: DAILY DOSE 25 MG
     Route: 054
  21. LOXONIN [Concomitant]
     Indication: PAIN
     Dosage: UNK
     Route: 048
     Dates: start: 20101209, end: 20101227
  22. MUCOSTA [Concomitant]
     Indication: PROPHYLAXIS
     Dosage: DAILY DOSE 100 MG
     Route: 048
     Dates: start: 20101209, end: 20101213
  23. LASIX [Concomitant]
     Dosage: DAILY DOSE 40 MG
     Route: 048
     Dates: start: 20101214
  24. CYTOTEC [Concomitant]
     Dosage: DAILY DOSE 800 MG
     Route: 048
     Dates: start: 20101214

REACTIONS (5)
  - WEIGHT DECREASED [None]
  - MALAISE [None]
  - AMMONIA INCREASED [None]
  - HEPATIC NEOPLASM MALIGNANT [None]
  - DECREASED APPETITE [None]
